FAERS Safety Report 9452396 (Version 4)
Quarter: 2013Q4

REPORT INFORMATION
  Report Type: Spontaneous
  Country: IT (occurrence: IT)
  Receive Date: 20130812
  Receipt Date: 20131007
  Transmission Date: 20140711
  Serious: Yes (Life-Threatening, Hospitalization, Other)
  Sender: FDA-Public Use
  Company Number: IT-ELI_LILLY_AND_COMPANY-IT201308002080

PATIENT
  Age: 84 Year
  Sex: Male

DRUGS (7)
  1. ZYPREXA [Suspect]
     Indication: PSYCHOTIC DISORDER
     Dosage: 2.5 MG, QD
     Route: 048
     Dates: start: 20090702, end: 20110611
  2. FLUVOXAMINE [Suspect]
     Indication: DEPRESSION
     Dosage: 300 MG, QD
     Route: 048
     Dates: start: 20090101, end: 20110611
  3. BROMAZEPAM [Concomitant]
     Dosage: 1 DF, UNKNOWN
     Route: 065
  4. ENAPREN [Concomitant]
     Dosage: 20 MG, EACH MORNING
     Route: 050
  5. DEPAKIN CHRONO [Concomitant]
     Dosage: 500 MG, BID
     Route: 050
  6. PANTORC [Concomitant]
     Dosage: 20 MG, UNKNOWN
     Route: 065
  7. GLIBEN                             /00145301/ [Concomitant]
     Dosage: 1 DF, UNKNOWN
     Route: 050

REACTIONS (10)
  - Acute myocardial infarction [Recovered/Resolved with Sequelae]
  - Cerebral ischaemia [Recovered/Resolved with Sequelae]
  - Electrocardiogram QT prolonged [Recovered/Resolved with Sequelae]
  - Leukocytosis [Unknown]
  - Blood homocysteine increased [Unknown]
  - Atrioventricular block first degree [Unknown]
  - Blood cholesterol increased [Unknown]
  - Low density lipoprotein increased [Unknown]
  - Blood triglycerides increased [Unknown]
  - Gamma-glutamyltransferase abnormal [Unknown]
